FAERS Safety Report 23764796 (Version 1)
Quarter: 2024Q2

REPORT INFORMATION
  Report Type: Spontaneous
  Country: US (occurrence: None)
  Receive Date: 20240420
  Receipt Date: 20240420
  Transmission Date: 20240716
  Serious: No
  Sender: FDA-Public Use
  Company Number: 2024A086442

PATIENT
  Sex: Male

DRUGS (1)
  1. BUDESONIDE\FORMOTEROL [Suspect]
     Active Substance: BUDESONIDE\FORMOTEROL
     Dosage: 160UG, UNKNOWN UNKNOWN
     Route: 055
     Dates: start: 20240319

REACTIONS (7)
  - Dry throat [Unknown]
  - Throat irritation [Unknown]
  - Visual impairment [Unknown]
  - Device delivery system issue [Unknown]
  - Intentional device use issue [Unknown]
  - Incorrect dose administered [Unknown]
  - Wrong technique in device usage process [Unknown]
